FAERS Safety Report 5467254-4 (Version None)
Quarter: 2007Q3

REPORT INFORMATION
  Report Type: 
  Country: None (occurrence: None)
  Receive Date: 20070925
  Receipt Date: 20070918
  Transmission Date: 20080115
  Serious: Yes (Death)
  Sender: FDA-Public Use
  Company Number: PHBS2007IT15036

PATIENT
  Age: 68 Year
  Sex: Female

DRUGS (2)
  1. LIPAXAN (ITALFARMACO) [Suspect]
     Indication: DYSLIPIDAEMIA
     Dosage: 80 MG, UNK
     Route: 048
     Dates: start: 20070625, end: 20070710
  2. PAROXETINE [Concomitant]
     Dosage: 10 MG, D

REACTIONS (10)
  - APHONIA [None]
  - BILIARY TRACT DISORDER [None]
  - BLOOD CREATINE PHOSPHOKINASE INCREASED [None]
  - CHROMATURIA [None]
  - DYSPNOEA [None]
  - LIVER DISORDER [None]
  - MYALGIA [None]
  - MYOGLOBIN BLOOD INCREASED [None]
  - RHABDOMYOLYSIS [None]
  - TRANSAMINASES INCREASED [None]
